FAERS Safety Report 5613956-6 (Version None)
Quarter: 2008Q1

REPORT INFORMATION
  Report Type: 
  Country: None (occurrence: None)
  Receive Date: 20080205
  Receipt Date: 20080125
  Transmission Date: 20080703
  Serious: Yes (Other)
  Sender: FDA-Public Use
  Company Number: US-ROCHE-543438

PATIENT
  Age: 66 Year
  Sex: Male

DRUGS (2)
  1. PEG-INTERFERON A-2A (RO 25-8310) [Suspect]
     Indication: DRUG USE FOR UNKNOWN INDICATION
     Dosage: PEGASYS 180 MCG PFS
     Route: 065
     Dates: start: 20061026, end: 20070930
  2. RIBAVIRIN [Suspect]
     Indication: DRUG USE FOR UNKNOWN INDICATION
     Dosage: COPEGUS 1200 MG
     Route: 065
     Dates: start: 20061026, end: 20070930

REACTIONS (1)
  - HAEMOPTYSIS [None]
